FAERS Safety Report 7288316-5 (Version None)
Quarter: 2011Q1

REPORT INFORMATION
  Report Type: 
  Country: None (occurrence: None)
  Receive Date: 20110211
  Receipt Date: 20110207
  Transmission Date: 20110831
  Serious: Yes (Death, Other)
  Sender: FDA-Public Use
  Company Number: US-SANOFI-AVENTIS-2011SA008263

PATIENT
  Age: 54 Year
  Sex: Male

DRUGS (4)
  1. SOLOSTAR [Suspect]
     Dates: end: 20110101
  2. ATORVASTATIN [Concomitant]
  3. LANTUS [Suspect]
     Indication: TYPE 2 DIABETES MELLITUS
     Route: 058
     Dates: end: 20110101
  4. METOPROLOL SUCCINATE [Concomitant]
     Indication: BLOOD PRESSURE

REACTIONS (5)
  - CARDIAC ARREST [None]
  - DEHYDRATION [None]
  - HYPOGLYCAEMIC UNCONSCIOUSNESS [None]
  - GASTROENTERITIS VIRAL [None]
  - ASTHENIA [None]
